FAERS Safety Report 10930121 (Version 1)
Quarter: 2015Q1

REPORT INFORMATION
  Report Type: Spontaneous
  Country: DE (occurrence: DE)
  Receive Date: 20150319
  Receipt Date: 20150319
  Transmission Date: 20150721
  Serious: Yes (Hospitalization)
  Sender: FDA-Public Use
  Company Number: DE-ASTRAZENECA-2003PK01370

PATIENT
  Age: 742 Month
  Sex: Male

DRUGS (1)
  1. ASCOTOP [Suspect]
     Active Substance: ZOLMITRIPTAN
     Indication: MIGRAINE
     Dosage: AS REQUIRED, INCREASED THE DOSAGE UP TO 5 MG ZOLMITRIPTAN THREE TO FOUR TIMES PER WEEK.
     Route: 048
     Dates: start: 200203, end: 200305

REACTIONS (2)
  - Cholestasis [Recovered/Resolved]
  - Biliary dyskinesia [Recovered/Resolved]

NARRATIVE: CASE EVENT DATE: 200211
